FAERS Safety Report 12894814 (Version 3)
Quarter: 2018Q3

REPORT INFORMATION
  Report Type: Report from Study
  Country: US (occurrence: US)
  Receive Date: 20161028
  Receipt Date: 20180907
  Transmission Date: 20181010
  Serious: Yes (Hospitalization, Other)
  Sender: FDA-Public Use
  Company Number: PHEH2016US028124

PATIENT
  Age: 62 Year
  Sex: Female

DRUGS (1)
  1. GILENYA [Suspect]
     Active Substance: FINGOLIMOD HYDROCHLORIDE
     Indication: PRODUCT USED FOR UNKNOWN INDICATION
     Dosage: 0.5 MG, UNK
     Route: 065

REACTIONS (13)
  - Fatigue [Recovering/Resolving]
  - Sleep disorder [Recovering/Resolving]
  - Concussion [Unknown]
  - Arthralgia [Unknown]
  - Visual impairment [Recovering/Resolving]
  - Muscle injury [Unknown]
  - Depression [Recovering/Resolving]
  - Heart rate decreased [Recovering/Resolving]
  - Contusion [Unknown]
  - Multiple sclerosis relapse [Recovering/Resolving]
  - Urinary tract infection [Recovering/Resolving]
  - Disease recurrence [Unknown]
  - Fall [Unknown]

NARRATIVE: CASE EVENT DATE: 20161122
